FAERS Safety Report 6274318-4 (Version None)
Quarter: 2009Q3

REPORT INFORMATION
  Report Type: 
  Country: None (occurrence: None)
  Receive Date: 20090720
  Receipt Date: 20090717
  Transmission Date: 20100115
  Serious: Yes (Other)
  Sender: FDA-Public Use
  Company Number: AU-BRISTOL-MYERS SQUIBB COMPANY-14530133

PATIENT
  Age: 48 Year
  Sex: Male

DRUGS (3)
  1. DIDANOSINE [Suspect]
     Indication: HIV INFECTION
     Dates: start: 20010101
  2. LAMIVUDINE [Suspect]
     Indication: HIV INFECTION
     Dates: start: 20010101
  3. NEVIRAPINE [Suspect]
     Indication: HIV INFECTION
     Dates: start: 20010101

REACTIONS (5)
  - BLOOD BILIRUBIN INCREASED [None]
  - HEPATITIS B DNA INCREASED [None]
  - PROTHROMBIN TIME SHORTENED [None]
  - SPLENOMEGALY [None]
  - TRANSAMINASES INCREASED [None]
